FAERS Safety Report 4528794-5 (Version None)
Quarter: 2004Q4

REPORT INFORMATION
  Report Type: 
  Country: None (occurrence: None)
  Receive Date: 20041214
  Receipt Date: 20041202
  Transmission Date: 20050328
  Serious: Yes (Life-Threatening, Hospitalization)
  Sender: FDA-Public Use
  Company Number: BRO-008010

PATIENT
  Age: 71 Year
  Sex: Male

DRUGS (2)
  1. IOPAMIDOL [Suspect]
     Indication: COMPUTERISED TOMOGRAM
     Dosage: IV
     Route: 042
     Dates: start: 20041122, end: 20041122
  2. IOPAMIDOL [Suspect]
     Indication: PANCREATITIS
     Dosage: IV
     Route: 042
     Dates: start: 20041122, end: 20041122

REACTIONS (4)
  - BLOOD PRESSURE DECREASED [None]
  - CONDITION AGGRAVATED [None]
  - NAUSEA [None]
  - PANCREATITIS [None]
